FAERS Safety Report 7611651 (Version 4)
Quarter: 2016Q2

REPORT INFORMATION
  Report Type: Spontaneous
  Country: BE (occurrence: BE)
  Receive Date: 20100929
  Receipt Date: 20160531
  Transmission Date: 20160815
  Serious: Yes (Other)
  Sender: FDA-Public Use
  Company Number: BE-PFIZER INC-2010119134

PATIENT
  Age: 45 Year
  Sex: Female
  Weight: 62.4 kg

DRUGS (3)
  1. L-THYROXIN [Concomitant]
     Active Substance: LEVOTHYROXINE SODIUM
     Dosage: 100 MG, 1X/DAY
     Route: 048
     Dates: start: 2008
  2. SOSTILAR [Suspect]
     Active Substance: CABERGOLINE
     Indication: PROLACTINOMA
     Dosage: 0.25 MG, 2X/DAY
     Route: 048
     Dates: start: 20070914
  3. ZOCOR [Concomitant]
     Active Substance: SIMVASTATIN
     Dosage: 20 MG, 1X/DAY
     Route: 048
     Dates: start: 2007

REACTIONS (5)
  - Bursitis [Not Recovered/Not Resolved]
  - Hypertension [Recovering/Resolving]
  - Amnesia [Not Recovered/Not Resolved]
  - Pericarditis [Unknown]
  - Joint stiffness [Not Recovered/Not Resolved]

NARRATIVE: CASE EVENT DATE: 2009
